FAERS Safety Report 7771919-9 (Version None)
Quarter: 2011Q3

REPORT INFORMATION
  Report Type: 
  Country: None (occurrence: None)
  Receive Date: 20110922
  Receipt Date: 20110207
  Transmission Date: 20111222
  Serious: No
  Sender: FDA-Public Use
  Company Number: US-ASTRAZENECA-2010SE42999

PATIENT
  Age: 35 Year
  Sex: Female
  Weight: 56.7 kg

DRUGS (9)
  1. AMLODIPINE [Concomitant]
     Indication: HYPERTENSION
  2. TEGRETOL [Concomitant]
     Indication: CONVULSION
  3. ZOLOFT [Concomitant]
  4. CLONIZAPAM [Concomitant]
  5. SEROQUEL [Suspect]
     Indication: BIPOLAR DISORDER
     Route: 048
  6. HIGH BLOOD PRESSURE MEDICATION [Concomitant]
     Indication: HYPERTENSION
  7. ZIACK [Concomitant]
  8. TEGRETOL [Concomitant]
     Indication: EPILEPSY
  9. LOVEXYL [Concomitant]
     Indication: THYROID DISORDER

REACTIONS (5)
  - DRUG WITHDRAWAL SYNDROME [None]
  - DRUG DOSE OMISSION [None]
  - MIGRAINE [None]
  - VOMITING [None]
  - TREMOR [None]
